FAERS Safety Report 18668258 (Version 1)
Quarter: 2020Q4

REPORT INFORMATION
  Report Type: Spontaneous
  Country: US (occurrence: US)
  Receive Date: 20201224
  Receipt Date: 20201224
  Transmission Date: 20210114
  Serious: Yes (Other)
  Sender: FDA-Public Use
  Company Number: None

PATIENT
  Age: 23 Year
  Sex: Female
  Weight: 68.85 kg

DRUGS (8)
  1. ONDANSETRON [Concomitant]
     Active Substance: ONDANSETRON
  2. SUMATRIPTAN. [Concomitant]
     Active Substance: SUMATRIPTAN
  3. ACETAMINOPHEN. [Concomitant]
     Active Substance: ACETAMINOPHEN
  4. NURTEC ODT [Concomitant]
     Active Substance: RIMEGEPANT SULFATE
  5. KETOROLAC [Concomitant]
     Active Substance: KETOROLAC TROMETHAMINE
  6. TOPIRAMATE. [Concomitant]
     Active Substance: TOPIRAMATE
  7. EMGALITY [Suspect]
     Active Substance: GALCANEZUMAB-GNLM
     Indication: MIGRAINE
     Dosage: ?          OTHER FREQUENCY:ONCE;?
     Route: 058
     Dates: start: 20201202, end: 20201222
  8. CYCLOBENZAPRINE. [Concomitant]
     Active Substance: CYCLOBENZAPRINE

REACTIONS (15)
  - Back pain [None]
  - Muscle spasms [None]
  - Insomnia [None]
  - Sinus disorder [None]
  - Condition aggravated [None]
  - Visual field defect [None]
  - Dizziness [None]
  - Malaise [None]
  - Sleep disorder [None]
  - Vision blurred [None]
  - Visual acuity reduced [None]
  - Tunnel vision [None]
  - Vestibular migraine [None]
  - Aphasia [None]
  - Memory impairment [None]

NARRATIVE: CASE EVENT DATE: 20201202
